FAERS Safety Report 10422294 (Version 5)
Quarter: 2018Q4

REPORT INFORMATION
  Report Type: Spontaneous
  Country: US (occurrence: US)
  Receive Date: 20140901
  Receipt Date: 20181031
  Transmission Date: 20190204
  Serious: Yes (Other)
  Sender: FDA-Public Use
  Company Number: US-ASTRAZENECA-2013SE85453

PATIENT
  Age: 68 Year
  Sex: Female

DRUGS (2)
  1. ZOMIG [Suspect]
     Active Substance: ZOLMITRIPTAN
     Indication: MIGRAINE
     Dosage: 1 SPRAY Q 2 HOURS IF NEEDED, MAX 2 SPRAYS IN 24 HOURS
     Route: 045
     Dates: start: 2013
  2. ZOMIG [Suspect]
     Active Substance: ZOLMITRIPTAN
     Indication: HEADACHE
     Dosage: 1 SPRAY Q 2 HOURS IF NEEDED, MAX 2 SPRAYS IN 24 HOURS
     Route: 045
     Dates: start: 2013

REACTIONS (19)
  - Sinus disorder [Unknown]
  - Facial pain [Unknown]
  - Dizziness [Unknown]
  - Pneumonia [Unknown]
  - Cardiac failure congestive [Unknown]
  - Pleural effusion [Unknown]
  - Sinusitis [Unknown]
  - Asthma [Unknown]
  - Pericardial effusion [Unknown]
  - Hypertension [Unknown]
  - Hypoaesthesia [Unknown]
  - Hypersensitivity [Unknown]
  - Pain [Unknown]
  - Chronic obstructive pulmonary disease [Unknown]
  - Cough [Unknown]
  - Abdominal distension [Unknown]
  - Dyspnoea [Unknown]
  - Sinus pain [Unknown]
  - Headache [Unknown]
